FAERS Safety Report 21256240 (Version 19)
Quarter: 2023Q4

REPORT INFORMATION
  Report Type: Spontaneous
  Country: CA (occurrence: CA)
  Receive Date: 20220825
  Receipt Date: 20231130
  Transmission Date: 20240110
  Serious: Yes (Hospitalization, Other)
  Sender: FDA-Public Use
  Company Number: CA-CELLTRION INC.-2022CA013633

PATIENT

DRUGS (31)
  1. INFLECTRA [Suspect]
     Active Substance: INFLIXIMAB-DYYB
     Indication: Crohn^s disease
     Dosage: 400 MG (5 MG/KG), INDUCTION AT WEEK 0 ,2, 6 THEN MAINTENANCE EVERY 8 WEEKS
     Route: 042
     Dates: start: 20220729
  2. INFLECTRA [Suspect]
     Active Substance: INFLIXIMAB-DYYB
     Dosage: 5 MG/KG, INDUCTION AT WEEK 0 ,2, 6 THEN MAINTENANCE EVERY 8 WEEKS
     Route: 042
     Dates: start: 20220729, end: 20221214
  3. INFLECTRA [Suspect]
     Active Substance: INFLIXIMAB-DYYB
     Dosage: 5 MG/KG, INDUCTION AT WEEK 0, 2, 6 THEN MAINTENANCE EVERY 8 WEEKS
     Route: 042
     Dates: start: 20220811
  4. INFLECTRA [Suspect]
     Active Substance: INFLIXIMAB-DYYB
     Dosage: 5 MG/KG, INDUCTION AT WEEK 0, 2, 6 THEN MAINTENANCE EVERY 8 WEEKS, W6 INFUSION
     Route: 042
     Dates: start: 20221018
  5. INFLECTRA [Suspect]
     Active Substance: INFLIXIMAB-DYYB
     Dosage: 5 MG/KG, INDUCTION AT WEEK 0, 2, 6 THEN MAINTENANCE EVERY 8 WEEKS
     Route: 042
     Dates: start: 20221214
  6. INFLECTRA [Suspect]
     Active Substance: INFLIXIMAB-DYYB
     Dosage: 10 MG/KG, AT INDUCTION WEEK 0, 2, 6 THEN MAINTENANCE EVERY 8 WEEKS
     Route: 042
     Dates: start: 20230210
  7. INFLECTRA [Suspect]
     Active Substance: INFLIXIMAB-DYYB
     Dosage: 10 MG/KG, INDUCTION AT WEEK 0, 2, 6 THEN MAINTENANCE EVERY 8 WEEKS
     Route: 042
     Dates: start: 20230210
  8. INFLECTRA [Suspect]
     Active Substance: INFLIXIMAB-DYYB
     Dosage: 10 MG/KG, INDUCTION AT WEEK 0, 2, 6 THEN MAINTENANCE EVERY 8 WEEKS
     Route: 042
     Dates: start: 20230410
  9. INFLECTRA [Suspect]
     Active Substance: INFLIXIMAB-DYYB
     Dosage: 10 MG/KG, (870MG) EVERY 8 WEEKS
     Route: 042
     Dates: start: 20230608
  10. INFLECTRA [Suspect]
     Active Substance: INFLIXIMAB-DYYB
     Dosage: 870 MG (10 MG/KG) EVERY 8 WEEKS
     Route: 042
     Dates: start: 20230731
  11. INFLECTRA [Suspect]
     Active Substance: INFLIXIMAB-DYYB
     Dosage: 880 MG (10 MG/KG) EVERY 8 WEEKS
     Route: 042
     Dates: start: 20230925
  12. INFLECTRA [Suspect]
     Active Substance: INFLIXIMAB-DYYB
     Dosage: 920 MG (10 MG/KG) EVERY 8 WEEKS
     Route: 042
     Dates: start: 20231120
  13. ACETAMINOPHEN [Concomitant]
     Active Substance: ACETAMINOPHEN
     Dosage: 500 MG
  14. FOLIC ACID [Concomitant]
     Active Substance: FOLIC ACID
     Dosage: 5 MG
  15. AMLODIPINE [Concomitant]
     Active Substance: AMLODIPINE BESYLATE
     Dosage: 7.5 MG (1DF)
  16. ARTIFICIAL TEARS [CARMELLOSE SODIUM] [Concomitant]
     Dosage: 1 DF
  17. DOMPERIDONE [Concomitant]
     Active Substance: DOMPERIDONE
     Dosage: 10 MG
  18. ESOMEPRAZOLE [Concomitant]
     Active Substance: ESOMEPRAZOLE
     Dosage: 20 MG
  19. ESTRONE [Concomitant]
     Active Substance: ESTRONE
     Dosage: 1 DF
  20. KETODERM [KETOCONAZOLE] [Concomitant]
     Dosage: 1 DF
  21. MAGNESIUM [Concomitant]
     Active Substance: MAGNESIUM
     Dosage: 500 MG
  22. PREDNISONE [Concomitant]
     Active Substance: PREDNISONE
     Dosage: 1 DF, OPTH
  23. PURINETHOL [Concomitant]
     Active Substance: MERCAPTOPURINE
     Dosage: 1 DF, DOSAGE NOT AVAILABLE
     Route: 065
     Dates: start: 2020
  24. SODIUM BICARBONATE [Concomitant]
     Active Substance: SODIUM BICARBONATE
     Dosage: 500 MG
  25. TRAZODONE [Concomitant]
     Active Substance: TRAZODONE HYDROCHLORIDE
     Dosage: 150 MG
  26. VENLAFAXINE [Concomitant]
     Active Substance: VENLAFAXINE HYDROCHLORIDE
     Dosage: 75 MG
  27. VENTOLIN [Concomitant]
     Active Substance: ALBUTEROL SULFATE
     Dosage: 100 UG
  28. VITAMIN B COMPLEX WITH C [Concomitant]
     Active Substance: ASCORBIC ACID\CALCIUM PANTOTHENATE\CYANOCOBALAMIN\NIACINAMIDE\PYRIDOXINE HYDROCHLORIDE\RIBOFLAVIN\TH
     Dosage: 1 DF
  29. ERGOCALCIFEROL [Concomitant]
     Active Substance: ERGOCALCIFEROL
     Dosage: 1000 IU
  30. MENADIONE [Concomitant]
     Active Substance: MENADIONE
     Dosage: 1 DF
  31. ZOPICLONE [Concomitant]
     Active Substance: ZOPICLONE
     Dosage: 5 MG

REACTIONS (26)
  - Stoma site haemorrhage [Recovered/Resolved]
  - Portal hypertension [Recovered/Resolved]
  - Uveitis [Recovered/Resolved]
  - Weight decreased [Unknown]
  - Stoma creation [Not Recovered/Not Resolved]
  - Corneal cyst [Not Recovered/Not Resolved]
  - Cellulitis [Recovered/Resolved]
  - Condition aggravated [Recovering/Resolving]
  - Keratitis [Not Recovered/Not Resolved]
  - Eye infection bacterial [Recovered/Resolved]
  - Pneumonia [Recovering/Resolving]
  - Drug level decreased [Unknown]
  - Hypoglycaemia [Unknown]
  - Fistula [Recovered/Resolved]
  - Mouth ulceration [Recovered/Resolved]
  - Eye inflammation [Recovering/Resolving]
  - COVID-19 [Recovering/Resolving]
  - Psoriasis [Recovering/Resolving]
  - Headache [Unknown]
  - Bacterial infection [Not Recovered/Not Resolved]
  - Diarrhoea [Unknown]
  - Abscess [Unknown]
  - Fatigue [Not Recovered/Not Resolved]
  - Arthralgia [Unknown]
  - Headache [Recovering/Resolving]
  - Inappropriate schedule of product administration [Unknown]

NARRATIVE: CASE EVENT DATE: 20220101
